FAERS Safety Report 13599011 (Version 1)
Quarter: 2017Q2

REPORT INFORMATION
  Report Type: Spontaneous
  Country: US (occurrence: MX)
  Receive Date: 20170531
  Receipt Date: 20170531
  Transmission Date: 20170830
  Serious: Yes (Hospitalization, Other)
  Sender: FDA-Public Use
  Company Number: US-SA-2017SA095416

PATIENT
  Age: 77 Year
  Sex: Female
  Weight: 48 kg

DRUGS (3)
  1. BLINDED THERAPY [Suspect]
     Active Substance: INVESTIGATIONAL PRODUCT
     Indication: BLADDER CANCER
     Route: 065
     Dates: start: 20170222, end: 20170315
  2. TAXOTERE [Suspect]
     Active Substance: DOCETAXEL
     Indication: BLADDER CANCER
     Route: 042
     Dates: start: 20170222, end: 20170222
  3. TAXOTERE [Suspect]
     Active Substance: DOCETAXEL
     Indication: BLADDER CANCER
     Route: 042
     Dates: start: 20170406, end: 20170406

REACTIONS (13)
  - Haemorrhage urinary tract [Not Recovered/Not Resolved]
  - Hypotension [Not Recovered/Not Resolved]
  - Asthenia [Not Recovered/Not Resolved]
  - Anaemia [Not Recovered/Not Resolved]
  - Visual acuity reduced [Not Recovered/Not Resolved]
  - Haematuria [Not Recovered/Not Resolved]
  - Cystitis [Unknown]
  - Arthralgia [Not Recovered/Not Resolved]
  - Haemoglobin decreased [Not Recovered/Not Resolved]
  - Pelvic pain [Unknown]
  - Pallor [Not Recovered/Not Resolved]
  - Proteinuria [Not Recovered/Not Resolved]
  - Fatigue [Not Recovered/Not Resolved]

NARRATIVE: CASE EVENT DATE: 20170416
